FAERS Safety Report 25598753 (Version 2)
Quarter: 2025Q3

REPORT INFORMATION
  Report Type: Spontaneous
  Country: MX (occurrence: MX)
  Receive Date: 20250724
  Receipt Date: 20250805
  Transmission Date: 20251020
  Serious: Yes (Other)
  Sender: SANDOZ
  Company Number: MX-002147023-NVSC2024MX049896

PATIENT
  Age: 67 Year
  Sex: Female
  Weight: 61 kg

DRUGS (20)
  1. METFORMIN [Suspect]
     Active Substance: METFORMIN HYDROCHLORIDE
     Dosage: 1 DF, QD (1 TABLET OF 850 MG)
     Route: 048
     Dates: start: 202409
  2. METFORMIN [Suspect]
     Active Substance: METFORMIN HYDROCHLORIDE
     Indication: Diabetes mellitus
     Dosage: 1.5 DF, QD,DOSAGE FORM, QD 1/2 TABLET OF 850 MG  IN THE MORNING AND 1 TABLET OF 850 MG AT  NIGHT, ST
     Route: 048
     Dates: start: 202310
  3. METFORMIN [Suspect]
     Active Substance: METFORMIN HYDROCHLORIDE
     Dosage: 850 MG, QD
     Route: 048
     Dates: start: 2017, end: 202503
  4. METFORMIN [Suspect]
     Active Substance: METFORMIN HYDROCHLORIDE
     Dosage: 850 MG, QD
     Route: 048
     Dates: start: 2019, end: 202504
  5. VALSARTAN [Suspect]
     Active Substance: VALSARTAN
     Dosage: 1 DF, QD (80 MG),  (MONTH AFTER STARTING  TREATMENT WITH CODIOV AN)
     Route: 048
     Dates: start: 2019
  6. VALSARTAN [Suspect]
     Active Substance: VALSARTAN
     Dosage: 1 DF, QD (1OF 80 MG),(AT NIGHT)
     Route: 048
  7. VALSARTAN [Suspect]
     Active Substance: VALSARTAN
     Dosage: 80 MG, QD  (ONCE DAILY / AT NIGHT)
     Route: 048
  8. VALSARTAN [Suspect]
     Active Substance: VALSARTAN
     Dosage: UNK, QD UNK, (ONCE DAILY / AT NIGHT)
     Route: 048
  9. VALSARTAN [Suspect]
     Active Substance: VALSARTAN
     Indication: Hypertension
     Dosage: 1 DF, QD  (80 MG), QD
     Route: 065
     Dates: start: 2017
  10. ASPIRIN [Concomitant]
     Active Substance: ASPIRIN
     Indication: Thrombosis prophylaxis
     Dosage: 1 DF, QD   (81 MG)
     Route: 048
     Dates: start: 2016
  11. ASPIRIN [Concomitant]
     Active Substance: ASPIRIN
     Indication: Prophylaxis
     Dosage: 1 DF, QD , (81 MG) (ENTERIC  COATED TABLET)
     Route: 048
     Dates: start: 2017
  12. ASPIRIN [Concomitant]
     Active Substance: ASPIRIN
     Indication: Hypertension
     Dosage: 1 DF, QD 81 MG) (ENTERIC  COATED TABLET)
     Route: 048
     Dates: start: 2019
  13. ASPIRIN [Concomitant]
     Active Substance: ASPIRIN
     Indication: Anticoagulant therapy
  14. ASPIRIN [Concomitant]
     Active Substance: ASPIRIN
     Indication: Coagulopathy
  15. Dimefor [Concomitant]
     Indication: Diabetes mellitus
     Dosage: 2000 MG, QD
     Route: 065
     Dates: start: 202503
  16. Dimefor [Concomitant]
     Dosage: 2000 MG, QD
     Route: 065
     Dates: start: 202504
  17. TENORMIN [Concomitant]
     Active Substance: ATENOLOL
     Indication: Hypertension
     Dosage: 1 DF, QD (100 MG)
     Route: 048
     Dates: start: 2017
  18. TENORMIN [Concomitant]
     Active Substance: ATENOLOL
     Dosage: 1 DF, QD (100 MG)
     Route: 048
     Dates: start: 2019
  19. LERCANIDIPINE HYDROCHLORIDE [Concomitant]
     Active Substance: LERCANIDIPINE HYDROCHLORIDE
     Indication: Hypertension
     Dosage: 1 DF, QD  (20 MG)
     Route: 048
     Dates: start: 2017
  20. LERCANIDIPINE HYDROCHLORIDE [Concomitant]
     Active Substance: LERCANIDIPINE HYDROCHLORIDE
     Dosage: 1 DF, QD  (20 MG)
     Route: 048
     Dates: start: 2019

REACTIONS (4)
  - Hypothyroidism [Not Recovered/Not Resolved]
  - Blood glucose increased [Recovering/Resolving]
  - Vitiligo [Not Recovered/Not Resolved]
  - Off label use [Unknown]

NARRATIVE: CASE EVENT DATE: 20231001
